FAERS Safety Report 19588511 (Version 5)
Quarter: 2022Q2

REPORT INFORMATION
  Report Type: Spontaneous
  Country: US (occurrence: US)
  Receive Date: 20210721
  Receipt Date: 20220426
  Transmission Date: 20220720
  Serious: Yes (Hospitalization)
  Sender: FDA-Public Use
  Company Number: US-BRISTOL-MYERS SQUIBB COMPANY-BMS-2021-070939

PATIENT
  Age: 81 Year
  Sex: Female

DRUGS (2)
  1. ORENCIA [Suspect]
     Active Substance: ABATACEPT
     Indication: Rheumatoid arthritis
     Dosage: 125 MILLIGRAM, QWK
     Route: 058
     Dates: start: 20200929
  2. ORENCIA [Suspect]
     Active Substance: ABATACEPT
     Indication: Hepatitis viral
     Route: 058
     Dates: start: 20200930

REACTIONS (3)
  - Hospitalisation [Unknown]
  - Arthralgia [Unknown]
  - Intentional product use issue [Unknown]
